FAERS Safety Report 18957878 (Version 2)
Quarter: 2021Q1

REPORT INFORMATION
  Report Type: Spontaneous
  Country: US (occurrence: US)
  Receive Date: 20210302
  Receipt Date: 20210306
  Transmission Date: 20210420
  Serious: Yes (Other)
  Sender: FDA-Public Use
  Company Number: US-ELI_LILLY_AND_COMPANY-US202102013257

PATIENT
  Age: 63 Year
  Sex: Male

DRUGS (5)
  1. HUMALOG KWIKPEN [Suspect]
     Active Substance: INSULIN LISPRO
     Indication: TYPE 1 DIABETES MELLITUS
     Dosage: UNK UNK, PRN
     Route: 058
  2. HUMALOG KWIKPEN [Suspect]
     Active Substance: INSULIN LISPRO
     Dosage: UNK UNK, UNKNOWN
     Route: 065
     Dates: start: 20210223
  3. HUMALOG [Suspect]
     Active Substance: INSULIN LISPRO
     Indication: TYPE 1 DIABETES MELLITUS
     Dosage: UNK UNK, UNKNOWN
     Route: 065
     Dates: start: 2016
  4. HUMALOG [Suspect]
     Active Substance: INSULIN LISPRO
     Indication: TYPE 1 DIABETES MELLITUS
     Dosage: 5 U, OTHER (1?5 UNITS PER MEAL)
     Route: 058
  5. HUMALOG [Suspect]
     Active Substance: INSULIN LISPRO
     Indication: TYPE 1 DIABETES MELLITUS
     Dosage: 5 U, OTHER (1?5 UNITS PER MEAL)
     Route: 058

REACTIONS (6)
  - Glycosylated haemoglobin increased [Unknown]
  - Incorrect product formulation administered [Unknown]
  - Blood glucose decreased [Unknown]
  - Blood glucose increased [Unknown]
  - Visual impairment [Unknown]
  - Fall [Unknown]

NARRATIVE: CASE EVENT DATE: 20210224
